FAERS Safety Report 6500230-9 (Version None)
Quarter: 2009Q4

REPORT INFORMATION
  Report Type: 
  Country: None (occurrence: None)
  Receive Date: 20091216
  Receipt Date: 20091207
  Transmission Date: 20100525
  Serious: Yes (Hospitalization)
  Sender: FDA-Public Use
  Company Number: KR-ASTRAZENECA-2009SE27575

PATIENT
  Age: 30 Year
  Sex: Female

DRUGS (14)
  1. LIDOCAINE [Suspect]
     Indication: EPIDURAL ANAESTHESIA
     Route: 008
  2. LIDOCAINE [Suspect]
     Route: 008
  3. LIDOCAINE [Suspect]
     Dosage: 10 ML THREE TIMES A DAY
     Route: 008
  4. LIDOCAINE [Suspect]
     Route: 008
  5. LIDOCAINE [Suspect]
     Route: 008
  6. LIDOCAINE [Suspect]
     Dosage: 5 ML TWO TIMES A DAY
     Route: 008
  7. BUPIVACAINE [Concomitant]
     Indication: EPIDURAL ANAESTHESIA
     Route: 008
  8. BUPIVACAINE [Concomitant]
     Route: 008
  9. BUPIVACAINE [Concomitant]
     Route: 008
  10. BUPIVACAINE [Concomitant]
     Route: 008
  11. FENTANYL [Concomitant]
  12. FENTANYL [Concomitant]
  13. MEPERIDINE HCL [Concomitant]
  14. CEFTRIAXONE SODIUM [Concomitant]
     Indication: PYREXIA

REACTIONS (4)
  - DYSCHEZIA [None]
  - OVERDOSE [None]
  - PARAPLEGIA [None]
  - URINARY RETENTION POSTOPERATIVE [None]
